FAERS Safety Report 9706197 (Version 1)
Quarter: 2013Q4

REPORT INFORMATION
  Report Type: Report from Study
  Country: DE (occurrence: DE)
  Receive Date: 20131124
  Receipt Date: 20131124
  Transmission Date: 20140711
  Serious: Yes (Hospitalization)
  Sender: FDA-Public Use
  Company Number: DE-ROCHE-1304428

PATIENT
  Sex: Female

DRUGS (2)
  1. PERTUZUMAB [Suspect]
     Indication: BREAST CANCER METASTATIC
     Route: 042
     Dates: start: 20121130, end: 20131023
  2. TRASTUZUMAB [Suspect]
     Indication: BREAST CANCER METASTATIC
     Route: 042
     Dates: start: 20121130, end: 20131023

REACTIONS (1)
  - Breast cancer [Not Recovered/Not Resolved]
